FAERS Safety Report 21123546 (Version 2)
Quarter: 2022Q3

REPORT INFORMATION
  Report Type: Spontaneous
  Country: US (occurrence: US)
  Receive Date: 20220724
  Receipt Date: 20220822
  Transmission Date: 20221026
  Serious: Yes (Hospitalization)
  Sender: FDA-Public Use
  Company Number: US-JNJFOC-20220738137

PATIENT
  Age: 78 Year
  Sex: Male
  Weight: 70.370 kg

DRUGS (1)
  1. XARELTO [Suspect]
     Active Substance: RIVAROXABAN
     Indication: Thrombosis
     Dosage: PRESCRIPTION NUMBER- 7349616
     Route: 048
     Dates: start: 20220629, end: 20220701

REACTIONS (2)
  - Hypersensitivity [Unknown]
  - Blood iron decreased [Unknown]

NARRATIVE: CASE EVENT DATE: 20220630
